FAERS Safety Report 6164454-5 (Version None)
Quarter: 2009Q2

REPORT INFORMATION
  Report Type: 
  Country: None (occurrence: None)
  Receive Date: 20090421
  Receipt Date: 20090413
  Transmission Date: 20091009
  Serious: Yes (Death)
  Sender: FDA-Public Use
  Company Number: GXKR2009US04587

PATIENT
  Age: 17 Year
  Sex: Female

DRUGS (4)
  1. TEMAZEPAM [Suspect]
  2. DIAZEPAM [Suspect]
  3. PROMETHAZINE [Suspect]
  4. MORPHINE [Suspect]

REACTIONS (1)
  - DRUG TOXICITY [None]
